FAERS Safety Report 7511833-7 (Version None)
Quarter: 2011Q2

REPORT INFORMATION
  Report Type: 
  Country: None (occurrence: None)
  Receive Date: 20110531
  Receipt Date: 20110524
  Transmission Date: 20111010
  Serious: Yes (Death)
  Sender: FDA-Public Use
  Company Number: DK-PFIZER INC-2011111226

PATIENT
  Age: 67 Year
  Sex: Female
  Weight: 51 kg

DRUGS (1)
  1. SUNITINIB MALATE [Suspect]
     Indication: RENAL CELL CARCINOMA
     Dosage: 25 MG, UNK
     Dates: start: 20080414, end: 20081014

REACTIONS (1)
  - SUDDEN DEATH [None]
